FAERS Safety Report 18430992 (Version 1)
Quarter: 2020Q4

REPORT INFORMATION
  Report Type: Report from Study
  Country: US (occurrence: US)
  Receive Date: 20201027
  Receipt Date: 20201027
  Transmission Date: 20210114
  Serious: No
  Sender: FDA-Public Use
  Company Number: US-AGIOS-2009US02173

PATIENT

DRUGS (1)
  1. TIBSOVO [Suspect]
     Active Substance: IVOSIDENIB
     Indication: MYELODYSPLASTIC SYNDROME
     Dosage: 250 MILLIGRAM, 2 TABLETS (500 MG), QD
     Route: 048
     Dates: start: 20200903

REACTIONS (4)
  - Erythema [Unknown]
  - Joint swelling [Unknown]
  - Oral pain [Unknown]
  - Off label use [Unknown]

NARRATIVE: CASE EVENT DATE: 20200903
